APPROVED DRUG PRODUCT: FINASTERIDE
Active Ingredient: FINASTERIDE
Strength: 1MG
Dosage Form/Route: TABLET;ORAL
Application: A077335 | Product #001
Applicant: CIPLA LTD
Approved: Nov 20, 2014 | RLD: No | RS: No | Type: DISCN